FAERS Safety Report 4552018-6 (Version None)
Quarter: 2005Q1

REPORT INFORMATION
  Report Type: 
  Country: None (occurrence: None)
  Receive Date: 20050113
  Receipt Date: 20050106
  Transmission Date: 20050727
  Serious: Yes (Death, Life-Threatening, Hospitalization)
  Sender: FDA-Public Use
  Company Number: US-MERCK-0501USA00671

PATIENT
  Sex: Male

DRUGS (1)
  1. INVANZ [Suspect]
     Indication: CELLULITIS
     Route: 065

REACTIONS (1)
  - DEATH [None]
